FAERS Safety Report 16179927 (Version 1)
Quarter: 2019Q2

REPORT INFORMATION
  Report Type: Spontaneous
  Country: US (occurrence: US)
  Receive Date: 20190410
  Receipt Date: 20190410
  Transmission Date: 20190711
  Serious: No
  Sender: FDA-Public Use
  Company Number: US-BAYER-2019-068372

PATIENT
  Age: 60 Year
  Sex: Male
  Weight: 98 kg

DRUGS (7)
  1. RID 1-2-3 SYSTEM [Suspect]
     Active Substance: PIPERONYL BUTOXIDE\PYRETHRUM EXTRACT
     Indication: SKIN DEPIGMENTATION
     Dosage: UNK
     Route: 061
  2. CLARITIN [Suspect]
     Active Substance: LORATADINE
     Indication: SKIN DEPIGMENTATION
     Dosage: UNK
     Route: 048
  3. CLARITIN-D 24 HOUR [Suspect]
     Active Substance: LORATADINE\PSEUDOEPHEDRINE SULFATE
     Indication: MULTIPLE ALLERGIES
  4. BLUE STAR [Concomitant]
     Active Substance: CAMPHOR (NATURAL)
     Dosage: UNK
  5. POLYSPORIN [BACITRACIN ZINC;NEOMYCIN SULFATE;POLYMYXIN B SULFATE] [Concomitant]
     Dosage: UNK
  6. CLARITIN-D 24 HOUR [Suspect]
     Active Substance: LORATADINE\PSEUDOEPHEDRINE SULFATE
     Indication: SKIN DEPIGMENTATION
     Dosage: UNK
     Route: 048
  7. CLARITIN [Suspect]
     Active Substance: LORATADINE
     Indication: MULTIPLE ALLERGIES

REACTIONS (3)
  - Off label use [None]
  - Dyspnoea [None]
  - Product use in unapproved indication [None]
